FAERS Safety Report 5144917-1 (Version None)
Quarter: 2006Q4

REPORT INFORMATION
  Report Type: 
  Country: None (occurrence: None)
  Receive Date: 20061107
  Receipt Date: 20061102
  Transmission Date: 20070319
  Serious: Yes (Death, Hospitalization)
  Sender: FDA-Public Use
  Company Number: 2006PK02255

PATIENT
  Age: 62 Year
  Sex: Male

DRUGS (7)
  1. MERONEM [Suspect]
     Indication: SEPSIS
     Route: 042
     Dates: start: 20060707, end: 20060709
  2. AMOXICILLIN [Suspect]
     Indication: CELLULITIS
     Route: 048
     Dates: start: 20060625
  3. AMOXICILLIN [Suspect]
     Indication: TOOTH ABSCESS
     Route: 048
     Dates: start: 20060625
  4. TIENAM [Suspect]
     Indication: SEPSIS
     Route: 042
     Dates: start: 20060705, end: 20060707
  5. VANCOCIN [Concomitant]
     Indication: SEPSIS
     Route: 042
     Dates: start: 20060705, end: 20060709
  6. VIBRAVENOES [Concomitant]
     Indication: SEPSIS
     Route: 042
     Dates: start: 20060707, end: 20060709
  7. XIGRIS [Concomitant]
     Indication: SHOCK
     Route: 042
     Dates: start: 20060707, end: 20060710

REACTIONS (8)
  - ANOREXIA [None]
  - CONFUSIONAL STATE [None]
  - MULTI-ORGAN FAILURE [None]
  - NECROSIS [None]
  - PERIPHERAL ISCHAEMIA [None]
  - SEPTIC SHOCK [None]
  - SUPERINFECTION [None]
  - TOXIC EPIDERMAL NECROLYSIS [None]
